FAERS Safety Report 7909169-5 (Version None)
Quarter: 2011Q4

REPORT INFORMATION
  Report Type: 
  Country: None (occurrence: None)
  Receive Date: 20111111
  Receipt Date: 20110426
  Transmission Date: 20120403
  Serious: No
  Sender: FDA-Public Use
  Company Number: US-GLAXOSMITHKLINE-A0924583A

PATIENT

DRUGS (1)
  1. CARVEDILOL [Suspect]

REACTIONS (1)
  - FEELING ABNORMAL [None]
